FAERS Safety Report 8934671 (Version 1)
Quarter: 2012Q4

REPORT INFORMATION
  Report Type: 
  Country: CH (occurrence: CH)
  Receive Date: 20121129
  Receipt Date: 20121129
  Transmission Date: 20130627
  Serious: Yes (Hospitalization)
  Sender: FDA-Public Use
  Company Number: CH-TEVA-372137ISR

PATIENT
  Age: 46 Year
  Sex: Male
  Weight: 51 kg

DRUGS (8)
  1. IRFEN [Suspect]
     Indication: TENDONITIS
     Dosage: 1600 Milligram Daily;
     Route: 048
     Dates: start: 201111, end: 201209
  2. IRFEN [Suspect]
     Dosage: Rather frequent use
     Route: 048
  3. IRFEN [Suspect]
  4. TRUVADA [Suspect]
     Indication: HIV INFECTION
     Dosage: Standard dose, not further specified
     Route: 048
     Dates: start: 2008, end: 201209
  5. REYATAZ [Concomitant]
     Indication: HIV INFECTION
     Dosage: Long-term therapy, standard dose, boosted with ritonavir
     Route: 048
     Dates: end: 201209
  6. METHADONE [Concomitant]
     Dosage: 100 Milligram Daily; Long-term therapy
     Route: 048
  7. DEPAKINE [Concomitant]
     Dosage: 1600 Milligram Daily; Long-term therapy
     Route: 048
  8. NORVIR [Concomitant]
     Indication: HIV INFECTION
     Dosage: 100 Milligram Daily;
     Route: 048
     Dates: start: 2008

REACTIONS (5)
  - Renal failure acute [Recovering/Resolving]
  - Fanconi syndrome [Recovering/Resolving]
  - Renal tubular disorder [Recovering/Resolving]
  - Hypokalaemia [Recovered/Resolved]
  - Hypophosphataemia [Recovered/Resolved]
